FAERS Safety Report 12164873 (Version 1)
Quarter: 2016Q1

REPORT INFORMATION
  Report Type: Report from Study
  Country: US (occurrence: US)
  Receive Date: 20160309
  Receipt Date: 20160309
  Transmission Date: 20160526
  Serious: Yes (Other)
  Sender: FDA-Public Use
  Company Number: US-ABBVIE-15P-163-1437818-00

PATIENT
  Sex: Female
  Weight: 72.64 kg

DRUGS (2)
  1. IBUPROFEN. [Suspect]
     Active Substance: IBUPROFEN
     Indication: PAIN
     Route: 048
  2. LUPRON DEPOT [Suspect]
     Active Substance: LEUPROLIDE ACETATE
     Indication: ENDOMETRIOSIS
     Route: 030
     Dates: start: 2010, end: 2012

REACTIONS (8)
  - Helicobacter infection [Recovering/Resolving]
  - Ulcer haemorrhage [Recovering/Resolving]
  - Hot flush [Recovered/Resolved]
  - Weight decreased [Recovered/Resolved]
  - Pelvic pain [Not Recovered/Not Resolved]
  - Night sweats [Recovered/Resolved]
  - Headache [Not Recovered/Not Resolved]
  - Endometriosis [Recovering/Resolving]

NARRATIVE: CASE EVENT DATE: 2010
